FAERS Safety Report 7552119-4 (Version None)
Quarter: 2011Q2

REPORT INFORMATION
  Report Type: 
  Country: None (occurrence: None)
  Receive Date: 20110616
  Receipt Date: 20110613
  Transmission Date: 20111010
  Serious: Yes (Death, Hospitalization)
  Sender: FDA-Public Use
  Company Number: PHHY2011US47746

PATIENT
  Sex: Male

DRUGS (6)
  1. OXYCODONE HCL [Concomitant]
     Route: 048
  2. AFINITOR [Suspect]
     Indication: METASTATIC RENAL CELL CARCINOMA
  3. AFINITOR [Suspect]
     Indication: MALIGNANT URINARY TRACT NEOPLASM
     Dosage: 5 MG, QD
     Route: 048
     Dates: start: 20110217
  4. TRICYCLIC ANTIDEPRESSANTS [Concomitant]
  5. THYROID TAB [Concomitant]
     Route: 048
  6. AMITRIPTYLINE HYDROCHLORIDE [Concomitant]
     Route: 048

REACTIONS (3)
  - NEOPLASM MALIGNANT [None]
  - ABDOMINAL PAIN [None]
  - ENTERITIS [None]
